FAERS Safety Report 17302122 (Version 1)
Quarter: 2020Q1

REPORT INFORMATION
  Report Type: Spontaneous
  Country: US (occurrence: US)
  Receive Date: 20200122
  Receipt Date: 20200122
  Transmission Date: 20200409
  Serious: No
  Sender: FDA-Public Use
  Company Number: US-ABBVIE-19K-163-3192954-00

PATIENT
  Age: 17 Year

DRUGS (1)
  1. ORILISSA [Suspect]
     Active Substance: ELAGOLIX SODIUM
     Indication: ENDOMETRIOSIS
     Route: 048

REACTIONS (6)
  - Anxiety [Unknown]
  - Gastritis [Unknown]
  - Genito-pelvic pain/penetration disorder [Unknown]
  - Pain [Unknown]
  - Somatic symptom disorder [Unknown]
  - Emotional distress [Unknown]
